FAERS Safety Report 14920543 (Version 2)
Quarter: 2018Q2

REPORT INFORMATION
  Report Type: Spontaneous
  Country: ES (occurrence: ES)
  Receive Date: 20180521
  Receipt Date: 20180619
  Transmission Date: 20180711
  Serious: Yes (Hospitalization, Other)
  Sender: FDA-Public Use
  Company Number: ES-ALLERGAN-1826854US

PATIENT
  Age: 71 Year
  Sex: Female

DRUGS (3)
  1. HYDROCHLOROTHIAZIDE UNK [Suspect]
     Active Substance: HYDROCHLOROTHIAZIDE
     Indication: HYPERTENSION
     Route: 065
  2. TELMISARTAN. [Suspect]
     Active Substance: TELMISARTAN
     Indication: HYPERTENSION
     Route: 065
  3. TRAMADOL RETARD [Suspect]
     Active Substance: TRAMADOL
     Indication: ARTHRALGIA
     Dosage: 200 MG, Q12H
     Route: 065

REACTIONS (7)
  - Tubulointerstitial nephritis [Unknown]
  - Renal impairment [Recovered/Resolved]
  - Proteinuria [Recovering/Resolving]
  - Dehydration [Unknown]
  - Fluid intake reduced [Unknown]
  - Hyponatraemia [Unknown]
  - Nausea [Unknown]
